FAERS Safety Report 8457826-7 (Version None)
Quarter: 2012Q2

REPORT INFORMATION
  Report Type: 
  Country: None (occurrence: None)
  Receive Date: 20120618
  Receipt Date: 20120618
  Transmission Date: 20120825
  Serious: No
  Sender: FDA-Public Use
  Company Number: None

PATIENT
  Age: 66 Year
  Sex: Male
  Weight: 89.9 kg

DRUGS (1)
  1. ENOXAPARIN [Suspect]
     Indication: ATRIAL FIBRILLATION
     Dosage: 100 MG BID SQ  : 100MG ML BID SQ
     Route: 058
     Dates: start: 20120530, end: 20120530

REACTIONS (5)
  - EAR HAEMORRHAGE [None]
  - EYE HAEMORRHAGE [None]
  - EPISTAXIS [None]
  - ANAL HAEMORRHAGE [None]
  - HAEMORRHAGE [None]
